FAERS Safety Report 24525304 (Version 1)
Quarter: 2024Q4

REPORT INFORMATION
  Report Type: Spontaneous
  Country: HR (occurrence: HR)
  Receive Date: 20241019
  Receipt Date: 20241019
  Transmission Date: 20250114
  Serious: Yes (Other)
  Sender: ABBVIE
  Company Number: None

PATIENT
  Age: 15 Year
  Sex: Male

DRUGS (1)
  1. ESCITALOPRAM [Suspect]
     Active Substance: ESCITALOPRAM OXALATE
     Indication: Product used for unknown indication
     Dosage: INTENTIONAL OVERDOSE: 7 TABLETS OF ESCITALOPRAM OF 20 MG
     Route: 048
     Dates: start: 20240713, end: 20240713

REACTIONS (4)
  - Product administered to patient of inappropriate age [Unknown]
  - Suicide attempt [Unknown]
  - No adverse event [Unknown]
  - Intentional overdose [Unknown]

NARRATIVE: CASE EVENT DATE: 20240713
